FAERS Safety Report 26004944 (Version 2)
Quarter: 2025Q4

REPORT INFORMATION
  Report Type: Report from Study
  Country: US (occurrence: US)
  Receive Date: 20251106
  Receipt Date: 20251112
  Transmission Date: 20260118
  Serious: Yes (Hospitalization, Other)
  Sender: BIOCODEX
  Company Number: US-BIOCODEX2-2025001704

PATIENT
  Sex: Female
  Weight: 62.6 kg

DRUGS (46)
  1. DIACOMIT [Suspect]
     Active Substance: STIRIPENTOL
     Indication: Severe myoclonic epilepsy of infancy
     Dates: start: 20241112
  2. DIACOMIT [Suspect]
     Active Substance: STIRIPENTOL
     Dates: start: 20241112
  3. DIACOMIT [Suspect]
     Active Substance: STIRIPENTOL
     Dates: start: 20241112
  4. DIACOMIT [Suspect]
     Active Substance: STIRIPENTOL
     Dates: start: 20241112
  5. DIACOMIT [Suspect]
     Active Substance: STIRIPENTOL
     Dates: start: 20241112
  6. DIACOMIT [Suspect]
     Active Substance: STIRIPENTOL
  7. DIACOMIT [Suspect]
     Active Substance: STIRIPENTOL
  8. DIACOMIT [Suspect]
     Active Substance: STIRIPENTOL
  9. DIACOMIT [Suspect]
     Active Substance: STIRIPENTOL
  10. DIACOMIT [Suspect]
     Active Substance: STIRIPENTOL
  11. DIACOMIT [Suspect]
     Active Substance: STIRIPENTOL
     Indication: Severe myoclonic epilepsy of infancy
     Dates: start: 20241112
  12. DIACOMIT [Suspect]
     Active Substance: STIRIPENTOL
     Dates: start: 20241112
  13. DIACOMIT [Suspect]
     Active Substance: STIRIPENTOL
     Dates: start: 20241112
  14. DIACOMIT [Suspect]
     Active Substance: STIRIPENTOL
     Dates: start: 20241112
  15. DIACOMIT [Suspect]
     Active Substance: STIRIPENTOL
     Dates: start: 20241112
  16. DIACOMIT [Suspect]
     Active Substance: STIRIPENTOL
     Dates: start: 20241112
  17. DIACOMIT [Suspect]
     Active Substance: STIRIPENTOL
  18. DIACOMIT [Suspect]
     Active Substance: STIRIPENTOL
  19. DIACOMIT [Suspect]
     Active Substance: STIRIPENTOL
  20. DIACOMIT [Suspect]
     Active Substance: STIRIPENTOL
  21. DIACOMIT [Suspect]
     Active Substance: STIRIPENTOL
  22. DIACOMIT [Suspect]
     Active Substance: STIRIPENTOL
  23. CLOBAZAM [Concomitant]
     Active Substance: CLOBAZAM
     Indication: Severe myoclonic epilepsy of infancy
  24. CLOBAZAM [Concomitant]
     Active Substance: CLOBAZAM
  25. ALBUTEROL [Concomitant]
     Active Substance: ALBUTEROL
     Indication: Product used for unknown indication
  26. ALBUTEROL [Concomitant]
     Active Substance: ALBUTEROL
  27. CLONAZEPAM [Concomitant]
     Active Substance: CLONAZEPAM
     Indication: Product used for unknown indication
  28. CLONAZEPAM [Concomitant]
     Active Substance: CLONAZEPAM
  29. CREON [Concomitant]
     Active Substance: PANCRELIPASE AMYLASE\PANCRELIPASE LIPASE\PANCRELIPASE PROTEASE
     Indication: Product used for unknown indication
  30. CREON [Concomitant]
     Active Substance: PANCRELIPASE AMYLASE\PANCRELIPASE LIPASE\PANCRELIPASE PROTEASE
  31. EPIDIOLEX [Concomitant]
     Active Substance: CANNABIDIOL
     Indication: Product used for unknown indication
  32. EPIDIOLEX [Concomitant]
     Active Substance: CANNABIDIOL
  33. FLONASE ALLERGY RELIEF [Concomitant]
     Active Substance: FLUTICASONE PROPIONATE
     Indication: Product used for unknown indication
  34. FLONASE ALLERGY RELIEF [Concomitant]
     Active Substance: FLUTICASONE PROPIONATE
  35. MONTELUKAST [Concomitant]
     Active Substance: MONTELUKAST
     Indication: Product used for unknown indication
  36. MONTELUKAST [Concomitant]
     Active Substance: MONTELUKAST
  37. PEPCID [Concomitant]
     Active Substance: FAMOTIDINE
     Indication: Product used for unknown indication
  38. PEPCID [Concomitant]
     Active Substance: FAMOTIDINE
  39. TOPAMAX [Concomitant]
     Active Substance: TOPIRAMATE
     Indication: Product used for unknown indication
  40. TOPAMAX [Concomitant]
     Active Substance: TOPIRAMATE
  41. VIMPAT [Concomitant]
     Active Substance: LACOSAMIDE
     Indication: Product used for unknown indication
  42. VIMPAT [Concomitant]
     Active Substance: LACOSAMIDE
  43. ZYRTEC ALLERGY [OTC] [Concomitant]
     Indication: Product used for unknown indication
  44. ZYRTEC ALLERGY [OTC] [Concomitant]
  45. FINTEPLA [Concomitant]
     Active Substance: FENFLURAMINE
     Indication: Product used for unknown indication
  46. FINTEPLA [Concomitant]
     Active Substance: FENFLURAMINE

REACTIONS (6)
  - Abnormal loss of weight [Unknown]
  - Drug ineffective [Unknown]
  - Seizure [Unknown]
  - Seizure cluster [Unknown]
  - Inappropriate schedule of product administration [Unknown]
  - Off label use [Unknown]
